FAERS Safety Report 11276630 (Version 2)
Quarter: 2015Q3

REPORT INFORMATION
  Report Type: Spontaneous
  Country: CH (occurrence: CH)
  Receive Date: 20150716
  Receipt Date: 20150717
  Transmission Date: 20151125
  Serious: Yes (Hospitalization)
  Sender: FDA-Public Use
  Company Number: CH-ASTRAZENECA-2015SE66520

PATIENT
  Age: 66 Year
  Sex: Female
  Weight: 78 kg

DRUGS (18)
  1. SERALIN [Concomitant]
     Active Substance: SERTRALINE HYDROCHLORIDE
     Route: 048
  2. ZOLPIDEM [Concomitant]
     Active Substance: ZOLPIDEM\ZOLPIDEM TARTRATE
     Route: 048
  3. UVAMINE [Concomitant]
     Active Substance: NITROFURANTOIN
     Indication: DIARRHOEA
  4. ISOPTIN [Interacting]
     Active Substance: VERAPAMIL HYDROCHLORIDE
     Indication: SUPRAVENTRICULAR TACHYARRHYTHMIA
     Route: 048
     Dates: start: 20150530, end: 20150531
  5. XARELTO [Concomitant]
     Active Substance: RIVAROXABAN
  6. ASACOL [Concomitant]
     Active Substance: MESALAMINE
     Route: 048
  7. BELOC ZOK [Suspect]
     Active Substance: METOPROLOL SUCCINATE
     Indication: SUPRAVENTRICULAR TACHYARRHYTHMIA
     Route: 048
     Dates: start: 201502, end: 20150531
  8. CALCIUM D3 [Concomitant]
     Active Substance: CALCIUM\CHOLECALCIFEROL
  9. URO VAXOM [Concomitant]
  10. METFIN [Concomitant]
     Active Substance: METFORMIN HYDROCHLORIDE
  11. LOSARTAN. [Concomitant]
     Active Substance: LOSARTAN
  12. PANTOZOL [Concomitant]
     Active Substance: PANTOPRAZOLE SODIUM
  13. GABAPENTIN. [Concomitant]
     Active Substance: GABAPENTIN
     Route: 048
  14. DAFALGAN [Concomitant]
     Active Substance: ACETAMINOPHEN
  15. SERESTA [Concomitant]
     Active Substance: OXAZEPAM
  16. ISOPTIN [Interacting]
     Active Substance: VERAPAMIL HYDROCHLORIDE
     Indication: SUPRAVENTRICULAR TACHYARRHYTHMIA
     Route: 048
     Dates: start: 20150520, end: 20150531
  17. GEVILON [Concomitant]
     Active Substance: GEMFIBROZIL
  18. SALOFALK [Concomitant]
     Active Substance: MESALAMINE

REACTIONS (4)
  - Atrioventricular block complete [Recovered/Resolved]
  - Hypotension [Recovered/Resolved]
  - Nodal arrhythmia [Recovered/Resolved]
  - Drug interaction [Unknown]

NARRATIVE: CASE EVENT DATE: 20150531
